FAERS Safety Report 9278356 (Version 1)
Quarter: 2013Q2

REPORT INFORMATION
  Report Type: Spontaneous
  Country: US (occurrence: None)
  Receive Date: 20130506
  Receipt Date: 20130506
  Transmission Date: 20140414
  Serious: Yes (Other)
  Sender: FDA-Public Use
  Company Number: None

PATIENT
  Age: 58 Year
  Sex: Female
  Weight: 71.22 kg

DRUGS (1)
  1. GABAPENTIN [Suspect]
     Indication: NEUROPATHY PERIPHERAL
     Dosage: 1 CAPSULE EVENING PO
     Route: 048
     Dates: start: 20130426, end: 20130503

REACTIONS (4)
  - Suicidal ideation [None]
  - Aggression [None]
  - Anger [None]
  - Product quality issue [None]
